FAERS Safety Report 9626888 (Version 1)
Quarter: 2013Q4

REPORT INFORMATION
  Report Type: Spontaneous
  Country: US (occurrence: US)
  Receive Date: 20131016
  Receipt Date: 20131016
  Transmission Date: 20140711
  Serious: No
  Sender: FDA-Public Use
  Company Number: US-BAYER-2013-125279

PATIENT
  Age: 20 Year
  Sex: Female

DRUGS (3)
  1. SAFYRAL [Suspect]
     Indication: MENORRHAGIA
     Dosage: UNK
     Dates: start: 201106
  2. SAFYRAL [Suspect]
     Indication: DYSMENORRHOEA
  3. SAFYRAL [Suspect]
     Indication: CONTRACEPTION

REACTIONS (1)
  - Drug dose omission [None]
